FAERS Safety Report 25620068 (Version 1)
Quarter: 2025Q3

REPORT INFORMATION
  Report Type: Spontaneous
  Country: US (occurrence: US)
  Receive Date: 20250730
  Receipt Date: 20250730
  Transmission Date: 20251020
  Serious: Yes (Other)
  Sender: ROCHE
  Company Number: US-ROCHE-10000348237

PATIENT
  Age: 80 Year
  Sex: Male

DRUGS (1)
  1. RITUXAN HYCELA [Suspect]
     Active Substance: HYALURONIDASE (HUMAN RECOMBINANT)\RITUXIMAB
     Indication: Non-Hodgkin^s lymphoma
     Route: 058

REACTIONS (3)
  - Pneumonia [Unknown]
  - Off label use [Unknown]
  - Metastasis [Unknown]
